FAERS Safety Report 9917292 (Version 2)
Quarter: 2014Q2

REPORT INFORMATION
  Report Type: Spontaneous
  Country: US (occurrence: US)
  Receive Date: 20140221
  Receipt Date: 20140408
  Transmission Date: 20141212
  Serious: Yes (Other)
  Sender: FDA-Public Use
  Company Number: US-PFIZER INC-2014049991

PATIENT
  Age: 77 Year
  Sex: Female
  Weight: 66.67 kg

DRUGS (5)
  1. TOVIAZ [Suspect]
     Indication: HYPERTONIC BLADDER
     Dosage: 8MG/DAY
     Route: 048
     Dates: start: 201212, end: 2013
  2. TOVIAZ [Suspect]
     Indication: INCONTINENCE
  3. FUROSEMIDE [Concomitant]
     Dosage: UNK
  4. HYDROCHLOROTHIAZIDE [Concomitant]
     Indication: HYPERTENSION
     Dosage: UNK
     Dates: start: 2010
  5. LOSARTAN [Concomitant]
     Indication: HYPERTENSION
     Dosage: UNK
     Dates: start: 2010

REACTIONS (25)
  - Deafness [Unknown]
  - Cerebrovascular accident [Recovered/Resolved with Sequelae]
  - Spinal disorder [Recovered/Resolved with Sequelae]
  - Vision blurred [Unknown]
  - Impaired driving ability [Unknown]
  - Hypoaesthesia [Unknown]
  - Localised infection [Unknown]
  - Fall [Unknown]
  - Mouth swelling [Recovered/Resolved]
  - Oral pain [Recovered/Resolved]
  - Oropharyngeal pain [Recovered/Resolved]
  - Dysphagia [Unknown]
  - Peripheral swelling [Unknown]
  - Fluid retention [Recovered/Resolved]
  - Muscular weakness [Not Recovered/Not Resolved]
  - Depression [Unknown]
  - Glaucoma [Unknown]
  - Malaise [Unknown]
  - Dysgeusia [Unknown]
  - Insomnia [Unknown]
  - Dry mouth [Unknown]
  - Constipation [Unknown]
  - Muscle spasms [Unknown]
  - Diarrhoea [Unknown]
  - Drug ineffective [Unknown]
